FAERS Safety Report 14482800 (Version 3)
Quarter: 2020Q2

REPORT INFORMATION
  Report Type: Spontaneous
  Country: US (occurrence: US)
  Receive Date: 20180203
  Receipt Date: 20200626
  Transmission Date: 20200713
  Serious: Yes (Hospitalization, Other)
  Sender: FDA-Public Use
  Company Number: US-BRISTOL-MYERS SQUIBB COMPANY-BMS-2018-007977

PATIENT
  Age: 65 Year
  Sex: Male

DRUGS (1)
  1. NIVOLUMAB [Suspect]
     Active Substance: NIVOLUMAB
     Indication: DIFFUSE LARGE B-CELL LYMPHOMA
     Route: 042

REACTIONS (5)
  - Erythema multiforme [Unknown]
  - Intentional product use issue [Unknown]
  - Stomatitis [Recovered/Resolved]
  - Skin plaque [Recovering/Resolving]
  - Penile erosion [Recovering/Resolving]
